FAERS Safety Report 8473193-7 (Version None)
Quarter: 2012Q2

REPORT INFORMATION
  Report Type: 
  Country: None (occurrence: None)
  Receive Date: 20120627
  Receipt Date: 20120613
  Transmission Date: 20120825
  Serious: Yes (Other)
  Sender: FDA-Public Use
  Company Number: DK-PFIZER INC-2012024174

PATIENT
  Age: 54 Year
  Sex: Male

DRUGS (8)
  1. DAUNORUBICIN HYDROCHLORIDE [Suspect]
     Indication: MYELODYSPLASTIC SYNDROME
  2. CYTARABINE [Suspect]
     Indication: ACUTE MYELOID LEUKAEMIA
     Dosage: UNK
     Dates: start: 20110921, end: 20111001
  3. CYTARABINE [Suspect]
     Indication: MYELODYSPLASTIC SYNDROME
  4. ETOPOSIDE [Suspect]
     Indication: ACUTE MYELOID LEUKAEMIA
     Dosage: UNK
     Dates: start: 20110921, end: 20111001
  5. GEMTUZUMAB OZOGAMICIN [Suspect]
     Indication: MYELODYSPLASTIC SYNDROME
  6. ETOPOPHOS PRESERVATIVE FREE [Suspect]
     Indication: MYELODYSPLASTIC SYNDROME
  7. GEMTUZUMAB OZOGAMICIN [Suspect]
     Indication: ACUTE MYELOID LEUKAEMIA
     Dosage: 6 MG (FREQUENCY UNSPECIFIED)
     Dates: start: 20110921, end: 20111001
  8. DAUNORUBICIN HYDROCHLORIDE [Suspect]
     Indication: ACUTE MYELOID LEUKAEMIA
     Dosage: UNK
     Dates: start: 20110921, end: 20111001

REACTIONS (1)
  - CARDIAC FAILURE [None]
